FAERS Safety Report 8046134-4 (Version None)
Quarter: 2012Q1

REPORT INFORMATION
  Report Type: 
  Country: None (occurrence: None)
  Receive Date: 20120113
  Receipt Date: 20120109
  Transmission Date: 20120608
  Serious: No
  Sender: FDA-Public Use
  Company Number: US-PFIZER INC-2012007597

PATIENT
  Sex: Female
  Weight: 77 kg

DRUGS (5)
  1. LYRICA [Suspect]
     Dosage: UNK, 1CAPSULE
     Route: 048
  2. CHANTIX [Suspect]
     Indication: SMOKING CESSATION THERAPY
     Dosage: UNK, ONE TABLET DAILY
     Route: 048
     Dates: start: 20111218, end: 20120108
  3. PERCOCET [Concomitant]
     Indication: ARTHRITIS
     Dosage: UNK
  4. LYRICA [Suspect]
     Indication: FIBROMYALGIA
     Dosage: 150 MG, UNK
     Route: 048
  5. FLUOXETINE HYDROCHLORIDE [Concomitant]
     Indication: MAJOR DEPRESSION
     Dosage: 40 MG, DAILY

REACTIONS (1)
  - NAIL DISCOLOURATION [None]
